FAERS Safety Report 20417222 (Version 4)
Quarter: 2022Q3

REPORT INFORMATION
  Report Type: Report from Study
  Country: CA (occurrence: CA)
  Receive Date: 20220202
  Receipt Date: 20220706
  Transmission Date: 20221027
  Serious: Yes (Hospitalization, Other)
  Sender: FDA-Public Use
  Company Number: CA-JNJFOC-20210601477

PATIENT
  Age: 5 Decade
  Sex: Female
  Weight: 88 kg

DRUGS (11)
  1. MACITENTAN [Suspect]
     Active Substance: MACITENTAN
     Indication: Pulmonary arterial hypertension
     Route: 048
     Dates: start: 20210422
  2. EPOPROSTENOL SODIUM [Suspect]
     Active Substance: EPOPROSTENOL SODIUM
     Indication: Pulmonary arterial hypertension
     Route: 042
     Dates: start: 20210507, end: 20210527
  3. EPOPROSTENOL SODIUM [Suspect]
     Active Substance: EPOPROSTENOL SODIUM
     Route: 042
     Dates: start: 20210527, end: 20210624
  4. EPOPROSTENOL SODIUM [Suspect]
     Active Substance: EPOPROSTENOL SODIUM
     Route: 042
     Dates: start: 20210624, end: 20211027
  5. EPOPROSTENOL SODIUM [Suspect]
     Active Substance: EPOPROSTENOL SODIUM
     Route: 042
     Dates: start: 20211027
  6. ADCIRCA [Concomitant]
     Active Substance: TADALAFIL
     Indication: Pulmonary arterial hypertension
     Route: 048
     Dates: start: 20210422
  7. ADCIRCA [Concomitant]
     Active Substance: TADALAFIL
     Route: 048
     Dates: start: 20210506
  8. ESCITALOPRAM [Concomitant]
     Active Substance: ESCITALOPRAM OXALATE
     Indication: Antidepressant therapy
     Route: 048
  9. FUROSEMIDE [Concomitant]
     Active Substance: FUROSEMIDE
     Indication: Cardiovascular event prophylaxis
     Route: 048
     Dates: start: 20210422
  10. FRAGMIN [Concomitant]
     Active Substance: DALTEPARIN SODIUM
     Indication: Anticoagulant therapy
     Route: 058
  11. PREGABALIN [Concomitant]
     Active Substance: PREGABALIN
     Indication: Pain
     Route: 048

REACTIONS (13)
  - Central venous catheterisation [Recovered/Resolved]
  - Deafness unilateral [Not Recovered/Not Resolved]
  - Pain in extremity [Not Recovered/Not Resolved]
  - Dizziness postural [Unknown]
  - Chest discomfort [Unknown]
  - Palpitations [Unknown]
  - COVID-19 [Unknown]
  - Flushing [Not Recovered/Not Resolved]
  - Diarrhoea [Not Recovered/Not Resolved]
  - Restless legs syndrome [Unknown]
  - Pain [Unknown]
  - Headache [Not Recovered/Not Resolved]
  - Nausea [Recovering/Resolving]

NARRATIVE: CASE EVENT DATE: 20210506
